FAERS Safety Report 19170141 (Version 2)
Quarter: 2021Q2

REPORT INFORMATION
  Report Type: Spontaneous
  Country: SI (occurrence: SI)
  Receive Date: 20210422
  Receipt Date: 20210427
  Transmission Date: 20210717
  Serious: Yes (Other)
  Sender: FDA-Public Use
  Company Number: NVSC2021SI082496

PATIENT
  Age: 61 Year
  Sex: Male

DRUGS (8)
  1. PRENEWEL [Suspect]
     Active Substance: INDAPAMIDE\PERINDOPRIL ERBUMINE
     Indication: HYPERTENSION
     Dosage: UNK
     Route: 048
     Dates: start: 2020, end: 202103
  2. CONCOR [Suspect]
     Active Substance: BISOPROLOL FUMARATE
     Indication: PRODUCT USED FOR UNKNOWN INDICATION
     Dosage: 0.5 DF, QD
     Route: 065
  3. PRENEWEL [Suspect]
     Active Substance: INDAPAMIDE\PERINDOPRIL ERBUMINE
     Dosage: 0.5 DF, QD (0.5 DF (4 MG/1.25 MG), 1X PER DAY, IN THE MORNING)
     Route: 048
     Dates: start: 2020, end: 202103
  4. PRENESSA [Suspect]
     Active Substance: PERINDOPRIL
     Dosage: 0.5 DF, QD
     Route: 065
     Dates: start: 202103
  5. METOJECT [Suspect]
     Active Substance: METHOTREXATE SODIUM
     Indication: PRODUCT USED FOR UNKNOWN INDICATION
     Dosage: 1 DF, QW
     Route: 065
     Dates: start: 20201001
  6. METHOTREXATE. [Suspect]
     Active Substance: METHOTREXATE
     Indication: PRODUCT USED FOR UNKNOWN INDICATION
     Dosage: UNK
     Route: 065
  7. PRENEWEL [Suspect]
     Active Substance: INDAPAMIDE\PERINDOPRIL ERBUMINE
     Dosage: 0.5 DF, QD (0.5 DF (4 MG/1.25 MG), 1X PER DAY, IN THE MORNING)
     Route: 048
     Dates: start: 2020, end: 202103
  8. PRENESSA [Suspect]
     Active Substance: PERINDOPRIL
     Indication: HYPERTENSION
     Dosage: UNK
     Route: 065
     Dates: start: 202103

REACTIONS (8)
  - Peripheral swelling [Unknown]
  - Faeces soft [Unknown]
  - Intentional product misuse [Unknown]
  - Angina pectoris [Unknown]
  - Hypokalaemia [Recovered/Resolved]
  - Asthenia [Recovered/Resolved]
  - Drug interaction [Unknown]
  - Headache [Unknown]
